FAERS Safety Report 24539020 (Version 2)
Quarter: 2025Q1

REPORT INFORMATION
  Report Type: Spontaneous
  Country: CN (occurrence: CN)
  Receive Date: 20241023
  Receipt Date: 20250127
  Transmission Date: 20250409
  Serious: Yes (Hospitalization)
  Sender: STRIDES
  Company Number: None

PATIENT
  Age: 56 Year
  Sex: Male

DRUGS (9)
  1. PREDNISOLONE [Suspect]
     Active Substance: PREDNISOLONE
     Indication: Acute kidney injury
     Route: 065
     Dates: start: 202308
  2. PREDNISOLONE [Suspect]
     Active Substance: PREDNISOLONE
     Indication: Immune-mediated renal disorder
  3. METHYLPREDNISOLONE [Suspect]
     Active Substance: METHYLPREDNISOLONE
     Indication: Acute kidney injury
     Route: 065
     Dates: start: 2023, end: 2023
  4. METHYLPREDNISOLONE [Suspect]
     Active Substance: METHYLPREDNISOLONE
     Indication: Immune-mediated renal disorder
     Route: 065
  5. CARBOPLATIN [Suspect]
     Active Substance: CARBOPLATIN
     Indication: Non-small cell lung cancer stage IIIA
     Route: 065
  6. PACLITAXEL [Suspect]
     Active Substance: PACLITAXEL
     Indication: Non-small cell lung cancer stage IIIA
     Route: 065
     Dates: start: 20230424, end: 202304
  7. PACLITAXEL [Suspect]
     Active Substance: PACLITAXEL
     Route: 065
     Dates: start: 20230515, end: 20230623
  8. TORIPALIMAB [Suspect]
     Active Substance: TORIPALIMAB
     Indication: Non-small cell lung cancer stage IIIA
     Route: 065
     Dates: start: 20230424, end: 202304
  9. TORIPALIMAB [Suspect]
     Active Substance: TORIPALIMAB
     Indication: Acute kidney injury
     Route: 065
     Dates: start: 20230515, end: 20230623

REACTIONS (4)
  - Pneumothorax spontaneous [Recovered/Resolved]
  - Pneumocystis jirovecii pneumonia [Recovered/Resolved]
  - Pneumonia cytomegaloviral [Recovered/Resolved]
  - Pneumonia herpes viral [Recovered/Resolved]

NARRATIVE: CASE EVENT DATE: 20230801
